FAERS Safety Report 7815826-1 (Version None)
Quarter: 2011Q4

REPORT INFORMATION
  Report Type: 
  Country: None (occurrence: None)
  Receive Date: 20111014
  Receipt Date: 20111003
  Transmission Date: 20120403
  Serious: Yes (Hospitalization)
  Sender: FDA-Public Use
  Company Number: AU-NOVOPROD-336449

PATIENT

DRUGS (2)
  1. LIRAGLUTIDE FLEXPEN [Suspect]
     Indication: OBESITY
     Dosage: 3.0 MG, QD
     Route: 058
     Dates: start: 20110615, end: 20111003
  2. LIRAGLUTIDE FLEXPEN [Suspect]
     Dosage: 1.5 MG, QD
     Route: 058
     Dates: start: 20111010

REACTIONS (1)
  - SUPRAVENTRICULAR TACHYCARDIA [None]
